FAERS Safety Report 23020269 (Version 1)
Quarter: 2023Q4

REPORT INFORMATION
  Report Type: Spontaneous
  Country: US (occurrence: None)
  Receive Date: 20231002
  Receipt Date: 20231002
  Transmission Date: 20240110
  Serious: Yes (Hospitalization)
  Sender: FDA-Public Use
  Company Number: None

PATIENT
  Age: 55 Year
  Sex: Male
  Weight: 74 kg

DRUGS (6)
  1. TECARTUS [Suspect]
     Active Substance: BREXUCABTAGENE AUTOLEUCEL
     Indication: Mantle cell lymphoma
     Dosage: OTHER FREQUENCY : ONCE;?
     Route: 042
     Dates: start: 20230530
  2. lacosamide (Vimpat [Concomitant]
     Dates: start: 20230605, end: 20230614
  3. dexAMETHasone (Decadron) injection [Concomitant]
     Dates: start: 20230605, end: 20230618
  4. anakinra (Kineret) [Concomitant]
     Dates: start: 20230604, end: 20230620
  5. KEPPRA [Concomitant]
     Active Substance: LEVETIRACETAM
     Dates: start: 20230530, end: 20230920
  6. acyclovir (Zovirax) [Concomitant]
     Dates: start: 20230530, end: 20231002

REACTIONS (2)
  - Immune effector cell-associated neurotoxicity syndrome [None]
  - Infusion related reaction [None]

NARRATIVE: CASE EVENT DATE: 20230101
